FAERS Safety Report 17567128 (Version 1)
Quarter: 2020Q1

REPORT INFORMATION
  Report Type: Spontaneous
  Country: FR (occurrence: FR)
  Receive Date: 20200320
  Receipt Date: 20200320
  Transmission Date: 20200409
  Serious: Yes (Other)
  Sender: FDA-Public Use
  Company Number: FR-US-PROVELL PHARMACEUTICALS LLC-9088598

PATIENT
  Age: 80 Year
  Sex: Female

DRUGS (10)
  1. SPIRONOLACTONE. [Concomitant]
     Active Substance: SPIRONOLACTONE
     Indication: PRODUCT USED FOR UNKNOWN INDICATION
     Dates: start: 20190220
  2. ULTRA-LEVURE [Concomitant]
     Active Substance: SACCHAROMYCES CEREVISIAE
     Indication: PRODUCT USED FOR UNKNOWN INDICATION
     Dates: start: 20190220
  3. TARKA [Concomitant]
     Active Substance: TRANDOLAPRIL\VERAPAMIL HYDROCHLORIDE
     Indication: PRODUCT USED FOR UNKNOWN INDICATION
     Dates: start: 20190220
  4. ROSUVASTATINE [Concomitant]
     Active Substance: ROSUVASTATIN
     Indication: PRODUCT USED FOR UNKNOWN INDICATION
     Dates: start: 20190220
  5. LEVOTHYROX [Suspect]
     Active Substance: LEVOTHYROXINE
     Dates: start: 201705, end: 201707
  6. ELIQUIS [Concomitant]
     Active Substance: APIXABAN
     Indication: PRODUCT USED FOR UNKNOWN INDICATION
  7. LEVOTHYROX [Suspect]
     Active Substance: LEVOTHYROXINE
     Indication: AUTOIMMUNE THYROIDITIS
     Dates: start: 201704, end: 201705
  8. LEVOTHYROX [Suspect]
     Active Substance: LEVOTHYROXINE
     Dates: start: 20190220
  9. LEVOTHYROX [Suspect]
     Active Substance: LEVOTHYROXINE
     Dates: start: 201707
  10. PARACETAMOL ARROW [Concomitant]
     Active Substance: ACETAMINOPHEN
     Indication: PRODUCT USED FOR UNKNOWN INDICATION
     Dates: start: 20190220

REACTIONS (21)
  - Hypogammaglobulinaemia [Unknown]
  - Red blood cell sedimentation rate increased [Unknown]
  - Dysuria [Unknown]
  - C-reactive protein increased [Unknown]
  - Insomnia [Unknown]
  - Renal failure [Unknown]
  - Eye irritation [Unknown]
  - Thyroid mass [Unknown]
  - Alopecia [Unknown]
  - Bacteriuria [Unknown]
  - Muscle spasms [Unknown]
  - Blood thyroid stimulating hormone increased [Unknown]
  - Abdominal pain upper [Unknown]
  - Epistaxis [Unknown]
  - Malaise [Unknown]
  - Myalgia [Unknown]
  - Anti-thyroid antibody positive [Unknown]
  - Headache [Unknown]
  - Diarrhoea [Unknown]
  - Vertigo [Unknown]
  - Fatigue [Unknown]

NARRATIVE: CASE EVENT DATE: 201705
